FAERS Safety Report 9490689 (Version 1)
Quarter: 2013Q3

REPORT INFORMATION
  Report Type: Spontaneous
  Country: LB (occurrence: None)
  Receive Date: 20130826
  Receipt Date: 20130826
  Transmission Date: 20140515
  Serious: Yes (Other)
  Sender: FDA-Public Use
  Company Number: 1858941

PATIENT
  Age: 72 Year
  Sex: Female

DRUGS (5)
  1. PLACLITAXEL [Suspect]
     Indication: BREAST CANCER
     Dosage: 80 MG/M2 MILLIEGRAN (S) SQ. METER ( 1 WEEK)
     Route: 041
  2. DEXAMETHASONE [Concomitant]
  3. GRANISETRON [Concomitant]
  4. DIPHENHYDRAMINE) [Concomitant]
  5. RANITIDINE [Concomitant]

REACTIONS (1)
  - Palmar-plantar erythrodysaesthesia syndrome [None]
